FAERS Safety Report 14125396 (Version 1)
Quarter: 2017Q4

REPORT INFORMATION
  Report Type: Spontaneous
  Country: GB (occurrence: GB)
  Receive Date: 20171025
  Receipt Date: 20171025
  Transmission Date: 20180321
  Serious: Yes (Hospitalization)
  Sender: FDA-Public Use
  Company Number: GB-BAYER-2017-197080

PATIENT
  Age: 93 Year

DRUGS (10)
  1. ATENOLOL. [Concomitant]
     Active Substance: ATENOLOL
     Dosage: 50 MG, UNK
  2. AMLODIPINE [Concomitant]
     Active Substance: AMLODIPINE BESYLATE
     Dosage: 5 MG, UNK
  3. PARACETAMOL [Concomitant]
     Active Substance: ACETAMINOPHEN
     Dosage: 500 MG, UNK
  4. GABAPENTIN. [Concomitant]
     Active Substance: GABAPENTIN
     Dosage: 300 MG, UNK
  5. NORTRIPTYLINE [Concomitant]
     Active Substance: NORTRIPTYLINE
     Dosage: 10 MG, UNK
  6. ACETYLSALICYLIC ACID({=100 MG) [Suspect]
     Active Substance: ASPIRIN
     Dosage: 150 MG, QD
     Route: 048
     Dates: end: 20170927
  7. PREDNISOLONE. [Suspect]
     Active Substance: PREDNISOLONE
     Dosage: 30 MG, QD
     Route: 048
     Dates: start: 20170919
  8. ISOSORBIDE MONONITRATE. [Concomitant]
     Active Substance: ISOSORBIDE MONONITRATE
     Dosage: 60 MG, UNK
  9. SALBUTAMOL [Concomitant]
     Active Substance: ALBUTEROL
     Dosage: 100 ?G, UNK
     Route: 055
  10. FLUTICASONE PROPIONATE W/SALMETEROL XINAFOATE [Concomitant]
     Active Substance: FLUTICASONE PROPIONATE\SALMETEROL XINAFOATE
     Dosage: UNK
     Route: 055

REACTIONS (5)
  - Faeces discoloured [Unknown]
  - Gastritis [Recovering/Resolving]
  - Haematemesis [Unknown]
  - Gastrooesophageal reflux disease [Recovering/Resolving]
  - Oesophageal candidiasis [Unknown]

NARRATIVE: CASE EVENT DATE: 20170927
